FAERS Safety Report 4302822-4 (Version None)
Quarter: 2004Q1

REPORT INFORMATION
  Report Type: 
  Country: None (occurrence: None)
  Receive Date: 20040223
  Receipt Date: 20040223
  Transmission Date: 20041129
  Serious: Yes (Hospitalization)
  Sender: FDA-Public Use
  Company Number: None

PATIENT
  Age: 76 Year
  Sex: Male

DRUGS (6)
  1. CELEBREX [Suspect]
     Indication: OSTEOARTHRITIS
     Dosage: 200 MG QD ORAL
     Route: 048
     Dates: start: 20000101, end: 20030810
  2. CELEBREX [Concomitant]
  3. NEXIUM [Concomitant]
  4. ASPIRIN [Concomitant]
  5. LASIX [Concomitant]
  6. MAVIK [Concomitant]

REACTIONS (3)
  - DIZZINESS [None]
  - GASTROINTESTINAL HAEMORRHAGE [None]
  - PEPTIC ULCER [None]
